FAERS Safety Report 17051068 (Version 1)
Quarter: 2019Q4

REPORT INFORMATION
  Report Type: Spontaneous
  Country: FR (occurrence: FR)
  Receive Date: 20191120
  Receipt Date: 20191120
  Transmission Date: 20200122
  Serious: Yes (Hospitalization)
  Sender: FDA-Public Use
  Company Number: FR-SUN PHARMACEUTICAL INDUSTRIES LTD-2019RR-228142

PATIENT
  Age: 22 Year
  Sex: Female
  Weight: 55 kg

DRUGS (5)
  1. TADALAFIL. [Suspect]
     Active Substance: TADALAFIL
     Indication: INTENTIONAL OVERDOSE
     Dosage: NP ()
     Route: 048
     Dates: start: 20191012, end: 20191012
  2. ZOLPIDEM [Suspect]
     Active Substance: ZOLPIDEM TARTRATE
     Indication: INTENTIONAL OVERDOSE
     Dosage: NP ()
     Route: 048
     Dates: start: 20191012, end: 20191012
  3. METHADONE AP-HP [Suspect]
     Active Substance: METHADONE HYDROCHLORIDE
     Indication: INTENTIONAL OVERDOSE
     Dosage: NP ()
     Route: 048
     Dates: start: 20191012, end: 20191012
  4. COCAINE [Suspect]
     Active Substance: COCAINE
     Indication: INTENTIONAL OVERDOSE
     Dosage: NP ()
     Route: 048
     Dates: start: 20191012, end: 20191012
  5. DIAZEPAM. [Suspect]
     Active Substance: DIAZEPAM
     Indication: INTENTIONAL OVERDOSE
     Dosage: NP ()
     Route: 048
     Dates: start: 20191012, end: 20191012

REACTIONS (3)
  - Miosis [Recovered/Resolved]
  - Poisoning deliberate [Recovered/Resolved]
  - Somnolence [Recovered/Resolved]

NARRATIVE: CASE EVENT DATE: 20191012
